FAERS Safety Report 24393352 (Version 2)
Quarter: 2025Q3

REPORT INFORMATION
  Report Type: Other
  Country: US (occurrence: US)
  Receive Date: 20241003
  Receipt Date: 20250710
  Transmission Date: 20251021
  Serious: No
  Sender: TRAVERE THERAPEUTICS
  Company Number: US-TRAVERE-2024TVT00955

PATIENT
  Age: 43 Year
  Sex: Male

DRUGS (1)
  1. FILSPARI [Suspect]
     Active Substance: SPARSENTAN
     Indication: IgA nephropathy
     Route: 048
     Dates: start: 202407

REACTIONS (6)
  - Abdominal discomfort [Recovered/Resolved]
  - Oral pain [Recovered/Resolved]
  - Oral herpes [Recovered/Resolved]
  - Oral mucosal blistering [Recovering/Resolving]
  - Muscular weakness [Unknown]
  - Hypoaesthesia [Unknown]

NARRATIVE: CASE EVENT DATE: 20240801
